FAERS Safety Report 10205135 (Version 1)
Quarter: 2014Q2

REPORT INFORMATION
  Report Type: Spontaneous
  Country: US (occurrence: None)
  Receive Date: 20140527
  Receipt Date: 20140527
  Transmission Date: 20141212
  Serious: No
  Sender: FDA-Public Use
  Company Number: None

PATIENT
  Age: 50 Year
  Sex: Male

DRUGS (2)
  1. SYMBICORT [Suspect]
     Indication: MULTIPLE ALLERGIES
     Dosage: 2 PUFFS TWICE DAILY INHALATION
     Route: 055
     Dates: start: 20140522, end: 20140524
  2. SYMBICORT [Suspect]
     Indication: ASTHMA
     Dosage: 2 PUFFS TWICE DAILY INHALATION
     Route: 055
     Dates: start: 20140522, end: 20140524

REACTIONS (4)
  - Headache [None]
  - Pain [None]
  - Pyrexia [None]
  - Product substitution issue [None]
